FAERS Safety Report 6538565-6 (Version None)
Quarter: 2010Q1

REPORT INFORMATION
  Report Type: 
  Country: None (occurrence: None)
  Receive Date: 20100114
  Receipt Date: 20100107
  Transmission Date: 20100710
  Serious: Yes (Life-Threatening, Congenital Anomaly)
  Sender: FDA-Public Use
  Company Number: GB-GILEAD-2009-0025175

PATIENT

DRUGS (9)
  1. TRUVADA [Suspect]
     Indication: HIV INFECTION
     Route: 064
     Dates: start: 20060905, end: 20081023
  2. ETRAVIRINE [Suspect]
     Route: 064
     Dates: start: 20081023
  3. PREZISTA [Suspect]
     Route: 064
     Dates: start: 20081023
  4. RALTEGRAVIR [Suspect]
     Route: 064
     Dates: start: 20081023
  5. NORVIR [Suspect]
     Route: 064
     Dates: start: 20060905, end: 20081023
  6. NORVIR [Suspect]
     Route: 064
     Dates: start: 20081023
  7. APTIVUS [Suspect]
     Route: 064
     Dates: start: 20060905, end: 20081023
  8. NOVORAPID [Concomitant]
     Route: 064
  9. ZIDOVUDINE [Concomitant]
     Route: 064

REACTIONS (4)
  - ANAL ATRESIA [None]
  - BLADDER AGENESIS [None]
  - CONGENITAL GENITAL MALFORMATION [None]
  - EXOMPHALOS [None]
